FAERS Safety Report 9728435 (Version 4)
Quarter: 2013Q4

REPORT INFORMATION
  Report Type: Report from Study
  Country: DE (occurrence: DE)
  Receive Date: 20131204
  Receipt Date: 20131211
  Transmission Date: 20140711
  Serious: Yes (Hospitalization, Other)
  Sender: FDA-Public Use
  Company Number: DE-UCBSA-103886

PATIENT
  Age: 74 Year
  Sex: Female

DRUGS (1)
  1. LEGANTO [Suspect]
     Route: 062
     Dates: end: 20131031

REACTIONS (9)
  - Muscle spasms [Unknown]
  - Thrombosis [Unknown]
  - Mental disorder [Unknown]
  - Fall [Unknown]
  - Loss of consciousness [Unknown]
  - Disorientation [Unknown]
  - Malaise [Unknown]
  - Fatigue [Unknown]
  - Asthenia [Unknown]
